FAERS Safety Report 6652459-7 (Version None)
Quarter: 2010Q1

REPORT INFORMATION
  Report Type: 
  Country: None (occurrence: None)
  Receive Date: 20100323
  Receipt Date: 20100311
  Transmission Date: 20100710
  Serious: Yes (Hospitalization)
  Sender: FDA-Public Use
  Company Number: 230001J10KOR

PATIENT

DRUGS (1)
  1. REBIF [Suspect]
     Dosage: 22 MCG, SUBCUTANEOUS
     Route: 058
     Dates: start: 20100212, end: 20100223

REACTIONS (6)
  - DECUBITUS ULCER [None]
  - DIARRHOEA [None]
  - DIPLEGIA [None]
  - HYPOTENSION [None]
  - INFECTED SKIN ULCER [None]
  - SENSORY LOSS [None]
